FAERS Safety Report 18273229 (Version 1)
Quarter: 2020Q3

REPORT INFORMATION
  Report Type: Spontaneous
  Country: FR (occurrence: FR)
  Receive Date: 20200916
  Receipt Date: 20200916
  Transmission Date: 20201103
  Serious: Yes (Hospitalization)
  Sender: FDA-Public Use
  Company Number: FR-TEVA-2020-FR-1826815

PATIENT
  Age: 86 Year
  Sex: Female

DRUGS (4)
  1. TANAKAN [Concomitant]
     Active Substance: GINKGO
     Dosage: UNSPECIFIED
     Route: 048
  2. KETOPROFENE [Suspect]
     Active Substance: KETOPROFEN
     Indication: OSTEOARTHRITIS
     Dosage: UNSPECIFIED
     Route: 048
  3. MONO TILDIEM LP 200 MG, GELULE A LIBERATION PROLONGEE [Concomitant]
     Active Substance: DILTIAZEM HYDROCHLORIDE
     Dosage: 1 DOSAGE FORMS
     Route: 048
  4. IRBESARTAN. [Concomitant]
     Active Substance: IRBESARTAN
     Dosage: 75MG
     Route: 048

REACTIONS (2)
  - Gastrointestinal motility disorder [Recovering/Resolving]
  - Abdominal pain [Recovering/Resolving]

NARRATIVE: CASE EVENT DATE: 20200121
